FAERS Safety Report 5524231-2 (Version None)
Quarter: 2007Q4

REPORT INFORMATION
  Report Type: 
  Country: None (occurrence: None)
  Receive Date: 20071121
  Receipt Date: 20071113
  Transmission Date: 20080405
  Serious: Yes (Other)
  Sender: FDA-Public Use
  Company Number: JP-PFIZER INC-2007079548

PATIENT
  Sex: Male
  Weight: 60 kg

DRUGS (3)
  1. HALCION [Suspect]
     Indication: INSOMNIA
     Dosage: DAILY DOSE:.25MG
     Route: 048
     Dates: start: 20011130, end: 20070201
  2. BLOPRESS [Suspect]
     Indication: ESSENTIAL HYPERTENSION
     Route: 048
     Dates: start: 20040827, end: 20071022
  3. DEPAS [Concomitant]
     Route: 048

REACTIONS (2)
  - LOSS OF CONSCIOUSNESS [None]
  - ROAD TRAFFIC ACCIDENT [None]
